APPROVED DRUG PRODUCT: LINEZOLID
Active Ingredient: LINEZOLID
Strength: 100MG/5ML
Dosage Form/Route: FOR SUSPENSION;ORAL
Application: A211813 | Product #001 | TE Code: AB
Applicant: HETERO LABS LTD
Approved: Oct 31, 2022 | RLD: No | RS: No | Type: RX